FAERS Safety Report 9397613 (Version 2)
Quarter: 2013Q3

REPORT INFORMATION
  Report Type: Spontaneous
  Country: US (occurrence: US)
  Receive Date: 20130712
  Receipt Date: 20130909
  Transmission Date: 20140515
  Serious: Yes (Hospitalization, Other)
  Sender: FDA-Public Use
  Company Number: US-ELI_LILLY_AND_COMPANY-US201307002680

PATIENT
  Age: 35 Year
  Sex: Female

DRUGS (5)
  1. FLUOXETINE HYDROCHLORIDE [Suspect]
     Dosage: 60 MG, UNK
  2. TRIAMCINOLONE ACETONIDE [Interacting]
     Indication: ARTHRALGIA
     Dosage: UNK, OTHER
     Route: 014
  3. LACTULOSE [Concomitant]
     Dosage: 10 MG, UNK
  4. ZOLPIDEM [Concomitant]
     Dosage: 5 MG, UNK
  5. POTASSIUM CHLORIDE [Concomitant]
     Dosage: 10 MEQ, UNK

REACTIONS (4)
  - Adrenal suppression [Recovered/Resolved]
  - Peptic ulcer [Recovered/Resolved]
  - Electrolyte imbalance [Recovered/Resolved]
  - Drug interaction [Recovered/Resolved]
